FAERS Safety Report 8838477 (Version 1)
Quarter: 2012Q4

REPORT INFORMATION
  Report Type: 
  Country: BE (occurrence: BE)
  Receive Date: 20121012
  Receipt Date: 20121012
  Transmission Date: 20130627
  Serious: Yes (Hospitalization)
  Sender: FDA-Public Use
  Company Number: BE-B.I. PHARMACEUTICALS,INC./RIDGEFIELD-2012-BL-00533BL

PATIENT
  Sex: Male

DRUGS (6)
  1. PRADAXA [Suspect]
     Indication: CEREBROVASCULAR ACCIDENT
     Dosage: 220 mg
     Route: 048
     Dates: start: 20120820, end: 20120914
  2. LANOXIN [Concomitant]
  3. LASIX [Concomitant]
     Route: 048
  4. TENORMIN MINOR [Concomitant]
  5. ZOROXIN [Concomitant]
  6. SEROQUEL [Concomitant]
     Route: 048

REACTIONS (4)
  - Cerebral haemorrhage [Not Recovered/Not Resolved]
  - Dysarthria [Not Recovered/Not Resolved]
  - Chills [Not Recovered/Not Resolved]
  - Urinary tract infection [Not Recovered/Not Resolved]
